FAERS Safety Report 6245513-5 (Version None)
Quarter: 2009Q2

REPORT INFORMATION
  Report Type: 
  Country: None (occurrence: None)
  Receive Date: 20090625
  Receipt Date: 20090619
  Transmission Date: 20091009
  Serious: Yes (Other)
  Sender: FDA-Public Use
  Company Number: US-BAYER-200910818BCC

PATIENT
  Age: 45 Year
  Sex: Male
  Weight: 95 kg

DRUGS (5)
  1. ALEVE (CAPLET) [Suspect]
     Indication: ABDOMINAL PAIN UPPER
     Dosage: TOTAL DAILY DOSE: 880 MG  UNIT DOSE: 220 MG
     Route: 048
     Dates: start: 20090218, end: 20090101
  2. ALEVE (CAPLET) [Suspect]
     Dosage: AS USED: 220 MG  UNIT DOSE: 220 MG
     Route: 048
     Dates: start: 20090217
  3. ALPRAZOLAM [Concomitant]
  4. EXCEDRIN [Concomitant]
  5. TYLENOL (CAPLET) [Concomitant]

REACTIONS (2)
  - BLOOD PRESSURE INCREASED [None]
  - HEART RATE INCREASED [None]
